FAERS Safety Report 9291051 (Version 2)
Quarter: 2012Q4

REPORT INFORMATION
  Report Type: Spontaneous
  Country: GB (occurrence: None)
  Receive Date: 20121018
  Receipt Date: 20121026
  Transmission Date: 20130627
  Serious: Yes (Other)
  Sender: FDA-Public Use
  Company Number: GER/UKI/12/0025008

PATIENT
  Age: 76 Year
  Sex: Male
  Weight: 94 kg

DRUGS (10)
  1. TERBINAFINE (TERBINAFINE) [Suspect]
     Indication: FUNGAL SKIN INFECTION
     Dosage: 1 IN 1 d
     Dates: start: 20120405, end: 20120604
  2. ALLOPURINOL (ALLOPURINOL) [Concomitant]
  3. ASPIRIN  (ACETYLSALICYLIC ACID) [Concomitant]
  4. FELODIPINE (FELODIPINE) [Concomitant]
  5. INDAPAMIDE (INDAPAMIDE) [Concomitant]
  6. LEVEMIR (INSULIN DETEMIR) [Concomitant]
  7. NOVORAPID (INSULIN ASPART) [Concomitant]
  8. RAMIPRIL (RAMIPRIL) [Concomitant]
  9. ROSUVASTATIN ( ROSUVASTATIN ) [Concomitant]
  10. TRAMADOL (TRAMADOL) [Concomitant]

REACTIONS (4)
  - Appetite disorder [None]
  - Ageusia [None]
  - Drug ineffective [None]
  - Blood glucose abnormal [None]
